FAERS Safety Report 7246746-1 (Version None)
Quarter: 2011Q1

REPORT INFORMATION
  Report Type: 
  Country: None (occurrence: None)
  Receive Date: 20110127
  Receipt Date: 20110119
  Transmission Date: 20110831
  Serious: Yes (Other)
  Sender: FDA-Public Use
  Company Number: US-JNJFOC-20100808576

PATIENT
  Sex: Male
  Weight: 138.8 kg

DRUGS (3)
  1. LEVAQUIN [Suspect]
     Indication: PROSTATITIS
     Route: 065
  2. LEVAQUIN [Suspect]
     Indication: IMMUNE SYSTEM DISORDER
     Route: 048
  3. LEVAQUIN [Suspect]
     Route: 048

REACTIONS (6)
  - TENDONITIS [None]
  - PERIARTHRITIS [None]
  - TENDON RUPTURE [None]
  - ROTATOR CUFF SYNDROME [None]
  - TENDON DISORDER [None]
  - OSTEOARTHRITIS [None]
